FAERS Safety Report 23573525 (Version 3)
Quarter: 2024Q1

REPORT INFORMATION
  Report Type: Spontaneous
  Country: GB (occurrence: None)
  Receive Date: 20240228
  Receipt Date: 20240325
  Transmission Date: 20240410
  Serious: Yes (Death, Life-Threatening)
  Sender: FDA-Public Use
  Company Number: 2024A044975

PATIENT
  Age: 71 Year
  Sex: Male
  Weight: 97 kg

DRUGS (9)
  1. ACALABRUTINIB [Suspect]
     Active Substance: ACALABRUTINIB
     Indication: Chronic lymphocytic leukaemia
     Dosage: 100MG BD; ;
     Route: 048
     Dates: start: 20230512, end: 20231004
  2. ALLOPURINOL [Concomitant]
     Active Substance: ALLOPURINOL
  3. FAMOTIDINE [Concomitant]
     Active Substance: FAMOTIDINE
  4. OXYCODONE [Concomitant]
     Active Substance: OXYCODONE\OXYCODONE HYDROCHLORIDE
  5. PENTAMIDINE [Concomitant]
     Active Substance: PENTAMIDINE
  6. PREGABALIN [Concomitant]
     Active Substance: PREGABALIN
  7. RAMIPRIL [Concomitant]
     Active Substance: RAMIPRIL
  8. SIMVASTATIN [Concomitant]
     Active Substance: SIMVASTATIN
  9. VALACYCLOVIR HYDROCHLORIDE [Concomitant]
     Active Substance: VALACYCLOVIR HYDROCHLORIDE

REACTIONS (6)
  - Progressive multifocal leukoencephalopathy [Fatal]
  - Feeling abnormal [Fatal]
  - Disturbance in attention [Fatal]
  - Balance disorder [Fatal]
  - Prosopagnosia [Fatal]
  - JC polyomavirus test positive [Unknown]

NARRATIVE: CASE EVENT DATE: 20230920
